FAERS Safety Report 10386951 (Version 2)
Quarter: 2014Q3

REPORT INFORMATION
  Report Type: Spontaneous
  Country: US (occurrence: US)
  Receive Date: 20140815
  Receipt Date: 20140918
  Transmission Date: 20150326
  Serious: No
  Sender: FDA-Public Use
  Company Number: US-PFIZER INC-2014224531

PATIENT
  Age: 71 Year
  Sex: Female

DRUGS (2)
  1. TOLTERODINE [Suspect]
     Active Substance: TOLTERODINE
     Indication: HYPERTONIC BLADDER
  2. DETROL LA [Suspect]
     Active Substance: TOLTERODINE TARTRATE
     Indication: HYPERTONIC BLADDER
     Dosage: 4 MG, 1X/DAY

REACTIONS (1)
  - Micturition disorder [Unknown]
